FAERS Safety Report 6997708-0 (Version None)
Quarter: 2010Q3

REPORT INFORMATION
  Report Type: 
  Country: None (occurrence: None)
  Receive Date: 20100918
  Receipt Date: 20091202
  Transmission Date: 20110219
  Serious: No
  Sender: FDA-Public Use
  Company Number: US-WYE-H12500209

PATIENT
  Age: 15 Year
  Sex: Female
  Weight: 59.93 kg

DRUGS (1)
  1. LYBREL [Suspect]
     Indication: MENSTRUATION IRREGULAR
     Route: 048
     Dates: start: 20070101

REACTIONS (8)
  - ACNE [None]
  - ASTHENIA [None]
  - CONDITION AGGRAVATED [None]
  - FATIGUE [None]
  - MIGRAINE [None]
  - PAIN IN EXTREMITY [None]
  - PIGMENTATION DISORDER [None]
  - WEIGHT INCREASED [None]
